FAERS Safety Report 8320115 (Version 2)
Quarter: 2014Q4

REPORT INFORMATION
  Report Type: Spontaneous
  Country: US (occurrence: US)
  Receive Date: 20120103
  Receipt Date: 20141121
  Transmission Date: 20150529
  Serious: Yes (Other)
  Sender: FDA-Public Use
  Company Number: US-ROCHE-784527

PATIENT
  Age: 18 Year
  Sex: Male
  Weight: 74.91 kg

DRUGS (2)
  1. ACCUTANE [Suspect]
     Active Substance: ISOTRETINOIN
     Indication: ACNE
     Route: 048
     Dates: start: 19990114, end: 19990603
  2. ACCUTANE [Suspect]
     Active Substance: ISOTRETINOIN
     Route: 048
     Dates: start: 20000126, end: 20000702

REACTIONS (10)
  - Otitis media [Unknown]
  - Inflammatory bowel disease [Unknown]
  - Conjunctivitis [Unknown]
  - Dry eye [Unknown]
  - Proctitis ulcerative [Unknown]
  - Emotional distress [Unknown]
  - Haemorrhoids [Unknown]
  - Dry skin [Unknown]
  - Colitis ulcerative [Unknown]
  - Depression [Unknown]

NARRATIVE: CASE EVENT DATE: 20000624
